FAERS Safety Report 11075546 (Version 1)
Quarter: 2015Q2

REPORT INFORMATION
  Report Type: Spontaneous
  Country: US (occurrence: US)
  Receive Date: 20150429
  Receipt Date: 20150429
  Transmission Date: 20150821
  Serious: Yes (Hospitalization)
  Sender: FDA-Public Use
  Company Number: US-AUROBINDO-AUR-APL-2015-02470

PATIENT
  Age: 76 Year
  Sex: Male

DRUGS (5)
  1. DONEPEZIL 5 MG [Suspect]
     Active Substance: DONEPEZIL
     Dosage: 15 MG, AT BED TIME
     Route: 065
  2. DONEPEZIL 5 MG [Suspect]
     Active Substance: DONEPEZIL
     Dosage: 10 MG, UNK
     Route: 065
  3. DONEPEZIL 5 MG [Suspect]
     Active Substance: DONEPEZIL
     Indication: PROPHYLAXIS
     Dosage: 5 MG, AT BED TIME
     Route: 065
  4. DONEPEZIL 5 MG [Suspect]
     Active Substance: DONEPEZIL
     Dosage: 5 MG, DAILY
     Route: 065
  5. DONEPEZIL 5 MG [Suspect]
     Active Substance: DONEPEZIL
     Dosage: 10 MG, DAILY
     Route: 065

REACTIONS (10)
  - Abdominal pain upper [Unknown]
  - Off label use [Unknown]
  - Acute kidney injury [Unknown]
  - Condition aggravated [Recovered/Resolved]
  - Eructation [Unknown]
  - Asthenia [Unknown]
  - Urosepsis [Unknown]
  - Heart sounds abnormal [Recovered/Resolved]
  - Hiccups [Recovered/Resolved]
  - Impulsive behaviour [Unknown]
